FAERS Safety Report 8413421-7 (Version None)
Quarter: 2012Q2

REPORT INFORMATION
  Report Type: 
  Country: None (occurrence: None)
  Receive Date: 20120605
  Receipt Date: 20120530
  Transmission Date: 20120825
  Serious: Yes (Other)
  Sender: FDA-Public Use
  Company Number: US-PFIZER INC-2012130755

PATIENT
  Sex: Female
  Weight: 72 kg

DRUGS (9)
  1. LYRICA [Suspect]
     Indication: SYSTEMIC LUPUS ERYTHEMATOSUS
     Dosage: 75 MG, 2X/DAY
     Route: 048
  2. LYRICA [Suspect]
     Indication: FIBROMYALGIA
     Dosage: 50 MG, DAILY
     Route: 048
  3. LYRICA [Suspect]
     Dosage: 150 MG, 1X/DAY
     Route: 048
  4. PLAQUENIL [Concomitant]
     Indication: SYSTEMIC LUPUS ERYTHEMATOSUS
     Dosage: 200 MG, 1X/DAY
  5. CYMBALTA [Concomitant]
     Indication: DEPRESSION
  6. MS CONTIN [Concomitant]
     Indication: BACK PAIN
     Dosage: 15 MG, 1X/DAY
  7. HYDROCODONE [Concomitant]
     Indication: BACK PAIN
     Dosage: UNK  MG, DAILY
  8. LYRICA [Suspect]
     Indication: BACK PAIN
     Dosage: 25MG, 2X/DAY
     Route: 048
     Dates: start: 20110901
  9. CYMBALTA [Concomitant]
     Indication: BACK PAIN
     Dosage: 120 MG, 1X/DAY

REACTIONS (3)
  - WEIGHT INCREASED [None]
  - FATIGUE [None]
  - PAIN [None]
